FAERS Safety Report 9039023 (Version 1)
Quarter: 2013Q1

REPORT INFORMATION
  Report Type: Spontaneous
  Country: US (occurrence: None)
  Receive Date: 20130123
  Receipt Date: 20130123
  Transmission Date: 20140127
  Serious: Yes (Disabling)
  Sender: FDA-Public Use
  Company Number: None

PATIENT
  Age: 60 Year
  Sex: Female
  Weight: 67.13 kg

DRUGS (1)
  1. LEVAQUIN [Suspect]
     Indication: SINUSITIS
     Dates: start: 20130113, end: 20130116

REACTIONS (5)
  - Arthralgia [None]
  - Pain in extremity [None]
  - Arthralgia [None]
  - Local swelling [None]
  - Joint swelling [None]
